FAERS Safety Report 4717649-9 (Version None)
Quarter: 2005Q3

REPORT INFORMATION
  Report Type: 
  Country: None (occurrence: None)
  Receive Date: 20050713
  Receipt Date: 20050315
  Transmission Date: 20060218
  Serious: Yes (Other)
  Sender: FDA-Public Use
  Company Number: 398995

PATIENT
  Age: 14 Year
  Sex: Male

DRUGS (2)
  1. FUZEON [Suspect]
     Indication: HIV INFECTION
     Dosage: OTHER
     Route: 050
  2. PROTEASE INHIBITORS (PROTEASE INHIBITORS) [Concomitant]

REACTIONS (5)
  - NEUTROPENIA [None]
  - PAIN [None]
  - PYREXIA [None]
  - SUBCUTANEOUS NODULE [None]
  - TENDERNESS [None]
